FAERS Safety Report 20577355 (Version 1)
Quarter: 2022Q1

REPORT INFORMATION
  Report Type: Spontaneous
  Country: US (occurrence: None)
  Receive Date: 20220309
  Receipt Date: 20220309
  Transmission Date: 20220423
  Serious: Yes (Hospitalization)
  Sender: FDA-Public Use
  Company Number: None

PATIENT
  Age: 75 Year
  Sex: Male

DRUGS (1)
  1. ABIRATERONE [Suspect]
     Active Substance: ABIRATERONE
     Dosage: 1000MG DAILY ORAL?
     Route: 048

REACTIONS (5)
  - Ventricular fibrillation [None]
  - Atrial fibrillation [None]
  - Lyme disease [None]
  - Memory impairment [None]
  - Therapy interrupted [None]

NARRATIVE: CASE EVENT DATE: 20220207
